FAERS Safety Report 17141141 (Version 4)
Quarter: 2022Q2

REPORT INFORMATION
  Report Type: Spontaneous
  Country: US (occurrence: US)
  Receive Date: 20191211
  Receipt Date: 20220405
  Transmission Date: 20220721
  Serious: No
  Sender: FDA-Public Use
  Company Number: US-PFIZER INC-2019533093

PATIENT
  Age: 52 Year
  Sex: Female

DRUGS (13)
  1. DOCETAXEL [Suspect]
     Active Substance: DOCETAXEL
     Indication: Breast cancer female
     Dosage: 190 MG, CYCLIC, 4 CYCLES (EVERY THREE WEEKS)
     Dates: start: 20110325, end: 20110526
  2. DOCETAXEL [Suspect]
     Active Substance: DOCETAXEL
     Dosage: 188 MG, CYCLIC, 4 CYCLES (EVERY THREE WEEKS)
     Dates: start: 20110325, end: 20110526
  3. DOCETAXEL [Suspect]
     Active Substance: DOCETAXEL
     Dosage: 150 MG, CYCLIC, 4 CYCLES (EVERY THREE WEEKS)
     Dates: start: 20110325, end: 20110526
  4. DOCETAXEL [Suspect]
     Active Substance: DOCETAXEL
     Dosage: UNK
     Dates: start: 201103, end: 201105
  5. TAXOTERE [Suspect]
     Active Substance: DOCETAXEL
     Indication: Breast cancer female
     Dosage: 190 MG, CYCLIC, 4 CYCLES (EVERY THREE WEEKS)
     Dates: start: 20110325, end: 20110526
  6. TAXOTERE [Suspect]
     Active Substance: DOCETAXEL
     Dosage: 188 MG, CYCLIC, 4 CYCLES (EVERY THREE WEEKS)
     Dates: start: 20110325, end: 20110526
  7. TAXOTERE [Suspect]
     Active Substance: DOCETAXEL
     Dosage: 150 MG, CYCLIC, 4 CYCLES (EVERY THREE WEEKS)
     Dates: start: 20110325, end: 20110526
  8. NEOSAR [Concomitant]
     Active Substance: CYCLOPHOSPHAMIDE
     Indication: Chemotherapy
     Dosage: UNK
  9. DOXIL [Concomitant]
     Active Substance: DOXORUBICIN HYDROCHLORIDE
     Indication: Chemotherapy
     Dosage: UNK
  10. CALTRATE [Concomitant]
     Active Substance: CALCIUM CARBONATE
     Dosage: UNK
     Dates: start: 2006
  11. LISINOPRIL [Concomitant]
     Active Substance: LISINOPRIL
     Dosage: UNK
     Dates: start: 2007
  12. ANASTROZOLE [Concomitant]
     Active Substance: ANASTROZOLE
     Indication: Hormone therapy
     Dosage: UNK
     Dates: start: 20120410, end: 20150118
  13. ANASTROZOLE [Concomitant]
     Active Substance: ANASTROZOLE
     Dosage: UNK
     Dates: start: 20150119, end: 20170911

REACTIONS (5)
  - Alopecia [Not Recovered/Not Resolved]
  - Hair texture abnormal [Not Recovered/Not Resolved]
  - Hair disorder [Not Recovered/Not Resolved]
  - Hair colour changes [Not Recovered/Not Resolved]
  - Madarosis [Not Recovered/Not Resolved]

NARRATIVE: CASE EVENT DATE: 20121101
